FAERS Safety Report 12242724 (Version 2)
Quarter: 2017Q1

REPORT INFORMATION
  Report Type: Spontaneous
  Country: US (occurrence: US)
  Receive Date: 20160406
  Receipt Date: 20170222
  Transmission Date: 20170428
  Serious: Yes (Other)
  Sender: FDA-Public Use
  Company Number: US-ELI_LILLY_AND_COMPANY-US201604000366

PATIENT
  Sex: Female

DRUGS (3)
  1. CYMBALTA [Suspect]
     Active Substance: DULOXETINE HYDROCHLORIDE
     Indication: DEPRESSION
     Dosage: 60 MG, QD
     Route: 048
     Dates: start: 20120803
  2. CYMBALTA [Suspect]
     Active Substance: DULOXETINE HYDROCHLORIDE
     Dosage: 30 MG, EVERY THREE DAYS
     Route: 048
     Dates: end: 20141002
  3. CYMBALTA [Suspect]
     Active Substance: DULOXETINE HYDROCHLORIDE
     Indication: PAIN
     Dosage: 30 MG, QD
     Route: 048

REACTIONS (14)
  - Nightmare [Unknown]
  - Suicidal ideation [Unknown]
  - Sleep disorder [Unknown]
  - Dizziness [Unknown]
  - Mood swings [Unknown]
  - Irritability [Unknown]
  - Paraesthesia [Unknown]
  - Agitation [Unknown]
  - Nausea [Unknown]
  - Pruritus [Unknown]
  - Vertigo [Unknown]
  - Drug withdrawal syndrome [Unknown]
  - Insomnia [Unknown]
  - Headache [Unknown]
